FAERS Safety Report 7670855-6 (Version None)
Quarter: 2011Q3

REPORT INFORMATION
  Report Type: 
  Country: None (occurrence: None)
  Receive Date: 20110809
  Receipt Date: 20110808
  Transmission Date: 20111222
  Serious: Yes (Other)
  Sender: FDA-Public Use
  Company Number: TR-BAYER-2011-069650

PATIENT
  Age: 58 Year
  Sex: Male

DRUGS (1)
  1. SORAFENIB (RAF KINASE INHIBITOR) [Suspect]
     Indication: METASTATIC RENAL CELL CARCINOMA
     Dosage: UNK
     Route: 048

REACTIONS (3)
  - HYPOTHYROIDISM [None]
  - HYPERTHYROIDISM [None]
  - THYROID DISORDER [None]
